FAERS Safety Report 13333573 (Version 1)
Quarter: 2017Q1

REPORT INFORMATION
  Report Type: Spontaneous
  Country: JP (occurrence: JP)
  Receive Date: 20170313
  Receipt Date: 20170313
  Transmission Date: 20170428
  Serious: Yes (Other)
  Sender: FDA-Public Use
  Company Number: JP-PFIZER INC-2017106750

PATIENT
  Age: 73 Year
  Sex: Female

DRUGS (13)
  1. CELECOX [Suspect]
     Active Substance: CELECOXIB
     Indication: RHEUMATOID ARTHRITIS
     Dosage: UNK
     Route: 048
  2. CELECOX [Suspect]
     Active Substance: CELECOXIB
     Dosage: 200 MG, AS NEEDED, WHEN IN PAIN
     Route: 048
     Dates: start: 20170202, end: 20170302
  3. ENBREL [Concomitant]
     Active Substance: ETANERCEPT
     Dosage: 25 MG, WEEKLY
     Route: 058
  4. AZULFIDINE EN-TABS [Suspect]
     Active Substance: SULFASALAZINE
     Dosage: 500 MG, 1X/DAY
     Dates: end: 20170302
  5. AZULFIDINE EN-TABS [Suspect]
     Active Substance: SULFASALAZINE
     Dosage: 1000 MG, 1X/DAY
  6. CELESTAMINE [Concomitant]
     Active Substance: BETAMETHASONE\DEXCHLORPHENIRAMINE MALEATE
     Dosage: UNK UNK, AS NEEDED
     Route: 065
  7. PRALIA [Concomitant]
     Active Substance: DENOSUMAB
     Dosage: 60 MG, ONCE IN 6 MONTHS
     Route: 058
  8. PROGRAF [Suspect]
     Active Substance: TACROLIMUS\TACROLIMUS ANHYDROUS
     Indication: RHEUMATOID ARTHRITIS
     Dosage: 0.5 MG, ONCE DAILY
     Route: 048
     Dates: start: 20150331, end: 20151013
  9. SIMPONI [Concomitant]
     Active Substance: GOLIMUMAB
     Dosage: 100 MG, UNK
     Route: 065
  10. PREDNISOLONE. [Concomitant]
     Active Substance: PREDNISOLONE
     Dosage: 2.5 MG, 1X/DAY
     Route: 065
  11. NEOJODIN [Concomitant]
     Dosage: UNK UNK, UNKNOWN FREQ.
     Route: 065
  12. ONEALFA [Concomitant]
     Active Substance: ALFACALCIDOL
     Dosage: 0.5 ?G, ONCE DAILY
     Route: 065
  13. PREDNISOLONE. [Concomitant]
     Active Substance: PREDNISOLONE
     Dosage: 3.5 MG, 1X/DAY
     Route: 065

REACTIONS (6)
  - Intentional underdose [Unknown]
  - Renal impairment [Unknown]
  - Large intestine polyp [Unknown]
  - Abdominal discomfort [Unknown]
  - Colon cancer [Unknown]
  - Diarrhoea [Unknown]

NARRATIVE: CASE EVENT DATE: 20150331
